FAERS Safety Report 11972986 (Version 2)
Quarter: 2016Q1

REPORT INFORMATION
  Report Type: Spontaneous
  Country: JP (occurrence: JP)
  Receive Date: 20160128
  Receipt Date: 20160222
  Transmission Date: 20160526
  Serious: Yes (Other)
  Sender: FDA-Public Use
  Company Number: JP-SA-2016SA012885

PATIENT
  Sex: Male

DRUGS (3)
  1. URIEF [Concomitant]
     Active Substance: SILODOSIN
     Route: 048
  2. FLIVAS [Concomitant]
     Active Substance: NAFTOPIDIL
     Route: 048
  3. DELLEGRA [Suspect]
     Active Substance: FEXOFENADINE HYDROCHLORIDE\PSEUDOEPHEDRINE HYDROCHLORIDE
     Indication: RHINITIS ALLERGIC
     Route: 048
     Dates: start: 20150314, end: 20150323

REACTIONS (1)
  - Urinary retention [Recovered/Resolved]

NARRATIVE: CASE EVENT DATE: 20150315
